FAERS Safety Report 7836375 (Version 2)
Quarter: 2012Q4

REPORT INFORMATION
  Report Type: 
  Country: GB (occurrence: GB)
  Receive Date: 20110302
  Receipt Date: 20120921
  Transmission Date: 20130627
  Serious: Yes (Life-Threatening, Hospitalization, Disabling)
  Sender: FDA-Public Use
  Company Number: GB-SHIRE-SPV1-2011-00324

PATIENT
  Age: 16 Year
  Sex: Male
  Weight: 39.8 kg

DRUGS (5)
  1. MESALAZINE [Suspect]
     Indication: CROHN^S DISEASE
     Dosage: 1 g, 3x/day:tid
     Route: 048
     Dates: start: 200901
  2. AZATHIOPRINE [Suspect]
     Indication: CROHN^S DISEASE
     Dosage: 75 mg, 1x/day:qd
     Route: 048
     Dates: start: 200810
  3. HUMIRA [Suspect]
     Indication: CROHN^S DISEASE
     Dosage: 80 mg, Unknown
     Route: 058
     Dates: start: 20101109
  4. REMICADE [Suspect]
     Indication: PRODUCT USED FOR UNKNOWN INDICATION
     Dosage: 1 DF, Other (every 2 months)
     Route: 042
     Dates: start: 200906, end: 201010
  5. PARACETAMOL [Concomitant]
     Indication: PRODUCT USED FOR UNKNOWN INDICATION
     Route: 065

REACTIONS (2)
  - Testicular germ cell cancer [Unknown]
  - Off label use [Unknown]
